FAERS Safety Report 4502268-X (Version None)
Quarter: 2004Q4

REPORT INFORMATION
  Report Type: 
  Country: None (occurrence: None)
  Receive Date: 20041109
  Receipt Date: 20041027
  Transmission Date: 20050328
  Serious: Yes (Hospitalization, Other)
  Sender: FDA-Public Use
  Company Number: 2004-00475

PATIENT
  Sex: Male
  Weight: 80 kg

DRUGS (6)
  1. VELCADE (BORTEZOMIB) INJECTION, 2.6MG [Suspect]
     Indication: PLASMACYTOMA
     Dosage: 2.60 MG, IV BOLUS
     Route: 040
     Dates: start: 20040826
  2. METOPROLOL TARTRATE [Concomitant]
  3. DIGITALIS (DIGITALIS) [Concomitant]
  4. IDEOS (COLECALCIFEROL, CALCIUM CARBONATE) [Concomitant]
  5. MAGNESIUM (MAGNESIUM) [Concomitant]
  6. ALIZAPRIDE (ALIZAPRIDE) [Concomitant]

REACTIONS (12)
  - ABDOMINAL PAIN [None]
  - ASTHENIA [None]
  - ATRIAL FIBRILLATION [None]
  - DEHYDRATION [None]
  - DIARRHOEA [None]
  - HERPES SIMPLEX [None]
  - HYPOKALAEMIA [None]
  - HYPOVOLAEMIA [None]
  - MARKEDLY REDUCED DIETARY INTAKE [None]
  - MEDICATION ERROR [None]
  - NAUSEA [None]
  - VOMITING [None]
